FAERS Safety Report 6557451-9 (Version None)
Quarter: 2010Q1

REPORT INFORMATION
  Report Type: 
  Country: None (occurrence: None)
  Receive Date: 20100127
  Receipt Date: 20100127
  Transmission Date: 20100710
  Serious: Yes (Other)
  Sender: FDA-Public Use
  Company Number: None

PATIENT
  Age: 61 Year
  Sex: Female
  Weight: 88.4514 kg

DRUGS (1)
  1. BENICAR HCT [Suspect]
     Indication: HYPERTENSION
     Dosage: 40-25, ONE DAILY
     Dates: start: 20100118

REACTIONS (4)
  - CHEST PAIN [None]
  - FATIGUE [None]
  - NAUSEA [None]
  - PALPITATIONS [None]
